FAERS Safety Report 10502134 (Version 2)
Quarter: 2014Q4

REPORT INFORMATION
  Report Type: Spontaneous
  Country: US (occurrence: US)
  Receive Date: 20141007
  Receipt Date: 20141215
  Transmission Date: 20150528
  Serious: Yes (Other)
  Sender: FDA-Public Use
  Company Number: PHEH2014US019814

PATIENT
  Age: 76 Year
  Sex: Female
  Weight: 53 kg

DRUGS (1)
  1. RECLAST [Suspect]
     Active Substance: ZOLEDRONIC ACID
     Indication: OSTEOPOROSIS
     Dosage: YEARLY INFUSION
     Route: 042
     Dates: start: 20130924

REACTIONS (5)
  - Pelvic fracture [Unknown]
  - Fall [Recovering/Resolving]
  - Back pain [Unknown]
  - Fractured sacrum [Unknown]
  - Rib fracture [Unknown]

NARRATIVE: CASE EVENT DATE: 20140817
